FAERS Safety Report 6220718-8 (Version None)
Quarter: 2009Q2

REPORT INFORMATION
  Report Type: 
  Country: None (occurrence: None)
  Receive Date: 20090610
  Receipt Date: 20090604
  Transmission Date: 20091009
  Serious: Yes (Other)
  Sender: FDA-Public Use
  Company Number: GB-ASTRAZENECA-2009GB01279

PATIENT
  Age: 17 Year
  Sex: Female

DRUGS (2)
  1. MERONEM [Suspect]
     Indication: ENTEROBACTER INFECTION
     Route: 042
     Dates: start: 20090501
  2. VANCOMYCIN HCL [Concomitant]

REACTIONS (1)
  - PANCYTOPENIA [None]
